FAERS Safety Report 6297771-9 (Version None)
Quarter: 2009Q3

REPORT INFORMATION
  Report Type: 
  Country: None (occurrence: None)
  Receive Date: 20090804
  Receipt Date: 20090804
  Transmission Date: 20100115
  Serious: Yes (Other)
  Sender: FDA-Public Use
  Company Number: None

PATIENT
  Age: 49 Year
  Sex: Female
  Weight: 58.9676 kg

DRUGS (1)
  1. KENALOG [Suspect]
     Indication: RHEUMATOID ARTHRITIS
     Dosage: KENELOG 80 - 1 SHOT ONE TIME
     Dates: start: 20090529, end: 20090529

REACTIONS (5)
  - INJECTION SITE DISCOLOURATION [None]
  - INJECTION SITE INDURATION [None]
  - MENOPAUSE [None]
  - OLIGOMENORRHOEA [None]
  - THERAPEUTIC RESPONSE DECREASED [None]
